FAERS Safety Report 7604364-7 (Version None)
Quarter: 2011Q2

REPORT INFORMATION
  Report Type: 
  Country: None (occurrence: None)
  Receive Date: 20110630
  Receipt Date: 20110621
  Transmission Date: 20111010
  Serious: Yes (Disabling)
  Sender: FDA-Public Use
  Company Number: 2008JP001233

PATIENT
  Age: 39 Year
  Sex: Female
  Weight: 61 kg

DRUGS (29)
  1. ADALAT [Concomitant]
  2. DOXAZOSIN MESYLATE [Concomitant]
  3. EPADEL-S (ETHYLICOSAPENTATE) [Concomitant]
  4. CEFOTIAM HYDROCHLORIDE [Concomitant]
  5. PERSANTIN [Concomitant]
  6. LEVOFLOXACIN [Concomitant]
  7. BEZATOL (BEZAFIBRATE) [Concomitant]
  8. FERRUM (FERROUS FUMARATE [Concomitant]
  9. RELIFEN (NABUMETONE) [Concomitant]
  10. TACROLIMUS [Suspect]
     Indication: LUPUS NEPHRITIS
     Dosage: 3 MG, /D, ORAL, 3 MG /D, ORAL,  3 MG, /D, ORAL, 1 MG, /D, ORAL, 2 MG, /D, ORAL, 2 MG, /D, ORAL, 1 MG
     Route: 048
     Dates: start: 20070213, end: 20080218
  11. TACROLIMUS [Suspect]
     Indication: LUPUS NEPHRITIS
     Dosage: 3 MG, /D, ORAL, 3 MG /D, ORAL,  3 MG, /D, ORAL, 1 MG, /D, ORAL, 2 MG, /D, ORAL, 2 MG, /D, ORAL, 1 MG
     Route: 048
     Dates: start: 20090528, end: 20090826
  12. TACROLIMUS [Suspect]
     Indication: LUPUS NEPHRITIS
     Dosage: 3 MG, /D, ORAL, 3 MG /D, ORAL,  3 MG, /D, ORAL, 1 MG, /D, ORAL, 2 MG, /D, ORAL, 2 MG, /D, ORAL, 1 MG
     Route: 048
     Dates: start: 20080313, end: 20080822
  13. TACROLIMUS [Suspect]
     Indication: LUPUS NEPHRITIS
     Dosage: 3 MG, /D, ORAL, 3 MG /D, ORAL,  3 MG, /D, ORAL, 1 MG, /D, ORAL, 2 MG, /D, ORAL, 2 MG, /D, ORAL, 1 MG
     Route: 048
     Dates: start: 20100518, end: 20100804
  14. TACROLIMUS [Suspect]
     Indication: LUPUS NEPHRITIS
     Dosage: 3 MG, /D, ORAL, 3 MG /D, ORAL,  3 MG, /D, ORAL, 1 MG, /D, ORAL, 2 MG, /D, ORAL, 2 MG, /D, ORAL, 1 MG
     Route: 048
     Dates: start: 20090827, end: 20100517
  15. TACROLIMUS [Suspect]
     Indication: LUPUS NEPHRITIS
     Dosage: 3 MG, /D, ORAL, 3 MG /D, ORAL,  3 MG, /D, ORAL, 1 MG, /D, ORAL, 2 MG, /D, ORAL, 2 MG, /D, ORAL, 1 MG
     Route: 048
     Dates: start: 20081204, end: 20090527
  16. PREDNISOLONE [Suspect]
     Indication: LUPUS NEPHRITIS
     Dosage: SEE IMAGE: ORAL
     Route: 048
     Dates: start: 20070304, end: 20070613
  17. PREDNISOLONE [Suspect]
     Indication: LUPUS NEPHRITIS
     Dosage: SEE IMAGE: ORAL
     Route: 048
     Dates: start: 20080731, end: 20080825
  18. PREDNISOLONE [Suspect]
     Indication: LUPUS NEPHRITIS
     Dosage: SEE IMAGE: ORAL
     Route: 048
     Dates: start: 20070126, end: 20070129
  19. PREDNISOLONE [Suspect]
     Indication: LUPUS NEPHRITIS
     Dosage: SEE IMAGE: ORAL
     Route: 048
     Dates: start: 20070614, end: 20080312
  20. PREDNISOLONE [Suspect]
     Indication: LUPUS NEPHRITIS
     Dosage: SEE IMAGE: ORAL
     Route: 048
     Dates: start: 20080826, end: 20081020
  21. PREDNISOLONE [Suspect]
     Indication: LUPUS NEPHRITIS
     Dosage: SEE IMAGE: ORAL
     Route: 048
     Dates: start: 20081021
  22. PREDNISOLONE [Suspect]
     Indication: LUPUS NEPHRITIS
     Dosage: SEE IMAGE: ORAL
     Route: 048
     Dates: start: 20070213, end: 20070303
  23. PREDNISOLONE [Suspect]
     Indication: LUPUS NEPHRITIS
     Dosage: SEE IMAGE: ORAL
     Route: 048
     Dates: start: 20080312, end: 20080730
  24. PREDNISOLONE [Suspect]
     Indication: LUPUS NEPHRITIS
     Dosage: SEE IMAGE: ORAL
     Route: 048
     Dates: start: 20070112, end: 20070125
  25. PREDNISOLONE [Suspect]
     Indication: LUPUS NEPHRITIS
     Dosage: SEE IMAGE: ORAL
     Route: 048
     Dates: start: 20070130, end: 20070212
  26. PREDNISOLONE [Suspect]
     Indication: LUPUS NEPHRITIS
     Dosage: SEE IMAGE: ORAL
     Route: 048
     Dates: start: 20020901
  27. SELBEX (TEPRENONE) [Concomitant]
  28. BLOPRESS (CANDESARTAN CILEXETIL) [Concomitant]
  29. COTRIM [Concomitant]

REACTIONS (5)
  - PYELONEPHRITIS [None]
  - RENAL FAILURE CHRONIC [None]
  - NEPHROGENIC ANAEMIA [None]
  - OSTEONECROSIS [None]
  - ENTERITIS INFECTIOUS [None]
